FAERS Safety Report 19586890 (Version 5)
Quarter: 2021Q4

REPORT INFORMATION
  Report Type: Report from Study
  Country: FR (occurrence: FR)
  Receive Date: 20210720
  Receipt Date: 20211208
  Transmission Date: 20220303
  Serious: Yes (Other)
  Sender: FDA-Public Use
  Company Number: FR-ABBVIE-19K-056-2976349-00

PATIENT
  Age: 63 Year
  Sex: Male

DRUGS (8)
  1. CARBIDOPA\LEVODOPA [Suspect]
     Active Substance: CARBIDOPA\LEVODOPA
     Indication: Parkinson^s disease
     Route: 050
     Dates: start: 201907
  2. CARBIDOPA\LEVODOPA [Suspect]
     Active Substance: CARBIDOPA\LEVODOPA
     Dosage: CONTINUOUS FLOW RATE DURING THE DAY: 6 ML/H
     Route: 050
  3. CARBIDOPA\LEVODOPA [Suspect]
     Active Substance: CARBIDOPA\LEVODOPA
     Dosage: CONTINUOUS FLOW RATE DURING THE DAY: 5.3 ML/H
     Route: 050
  4. CARBIDOPA\LEVODOPA [Suspect]
     Active Substance: CARBIDOPA\LEVODOPA
     Dosage: MORNING DOSE: 6 ML, CONTINUOUS FLOW RATE 7 AM TO 11 PM: 6 ML/H, EXTRA DOSE: 3 ML.
     Route: 050
  5. MELATONIN [Concomitant]
     Active Substance: MELATONIN
     Indication: Product used for unknown indication
     Route: 065
     Dates: start: 2020, end: 2020
  6. MELATONIN [Concomitant]
     Active Substance: MELATONIN
     Dosage: DOSAGE INCREASED
     Route: 065
     Dates: start: 2021
  7. HERBALS [Concomitant]
     Active Substance: HERBALS
     Indication: Product used for unknown indication
     Dosage: AT NIGHT
  8. CARBIDOPA\LEVODOPA [Concomitant]
     Active Substance: CARBIDOPA\LEVODOPA
     Indication: Middle insomnia
     Dosage: 100MG/10MG

REACTIONS (47)
  - Cerebrovascular accident [Unknown]
  - Movement disorder [Unknown]
  - Urinary incontinence [Unknown]
  - Insomnia [Unknown]
  - Cognitive disorder [Unknown]
  - Memory impairment [Unknown]
  - Device issue [Unknown]
  - Back pain [Recovered/Resolved]
  - Balance disorder [Unknown]
  - Drug intolerance [Unknown]
  - Nightmare [Unknown]
  - Fatigue [Unknown]
  - Sleep disorder [Unknown]
  - Somnolence [Recovering/Resolving]
  - Middle insomnia [Unknown]
  - Stoma site discharge [Unknown]
  - Freezing phenomenon [Unknown]
  - Insomnia [Recovered/Resolved]
  - Somnolence [Recovered/Resolved]
  - Bradykinesia [Recovered/Resolved]
  - Insomnia [Recovered/Resolved]
  - Insomnia [Unknown]
  - Arthralgia [Unknown]
  - Balance disorder [Unknown]
  - Mobility decreased [Unknown]
  - Somnolence [Not Recovered/Not Resolved]
  - Disturbance in attention [Unknown]
  - Memory impairment [Unknown]
  - Restlessness [Not Recovered/Not Resolved]
  - Insomnia [Not Recovered/Not Resolved]
  - Osteoarthritis [Unknown]
  - Pollakiuria [Unknown]
  - Sleep apnoea syndrome [Unknown]
  - Blood glucose increased [Unknown]
  - Fall [Unknown]
  - Apathy [Unknown]
  - Agitation [Unknown]
  - Disorientation [Unknown]
  - Speech disorder [Unknown]
  - Hypothyroidism [Unknown]
  - Speech disorder [Unknown]
  - Hallucination [Recovered/Resolved]
  - Confusional state [Unknown]
  - Poor quality sleep [Unknown]
  - Depressed level of consciousness [Unknown]
  - Somnolence [Unknown]
  - Disease risk factor [Unknown]

NARRATIVE: CASE EVENT DATE: 20190101
